FAERS Safety Report 21705775 (Version 2)
Quarter: 2022Q4

REPORT INFORMATION
  Report Type: Report from Study
  Country: KR (occurrence: KR)
  Receive Date: 20221209
  Receipt Date: 20221219
  Transmission Date: 20230113
  Serious: Yes (Hospitalization)
  Sender: FDA-Public Use
  Company Number: KR-GLAXOSMITHKLINE-KR2022GSK184150

PATIENT

DRUGS (8)
  1. FLUTICASONE FUROATE\UMECLIDINIUM BROMIDE\VILANTEROL TRIFENATATE [Suspect]
     Active Substance: FLUTICASONE FUROATE\UMECLIDINIUM BROMIDE\VILANTEROL TRIFENATATE
     Indication: Chronic obstructive pulmonary disease
     Dosage: UNK, QD
     Route: 055
     Dates: start: 20211105
  2. VENTOLIN [Concomitant]
     Active Substance: ALBUTEROL SULFATE
     Indication: Chronic obstructive pulmonary disease
     Dosage: 2 , TID
     Route: 055
     Dates: start: 20190612
  3. MODERNA CORONAVIRUS 19 VACCINE [Concomitant]
     Indication: COVID-19 immunisation
     Dosage: 1 SINGLE DOSE
     Route: 030
     Dates: start: 20211216, end: 20211216
  4. ALLEGRA [Concomitant]
     Active Substance: FEXOFENADINE HYDROCHLORIDE
     Indication: Rhinitis
     Dosage: 1 DF, BID
     Route: 048
     Dates: start: 20210708
  5. STOGAR TABLET [Concomitant]
     Indication: Gastrointestinal disorder prophylaxis
     Dosage: 10 MG, SINGLE DOSE, QD
     Route: 048
     Dates: start: 20220828
  6. CRESNON TABLET [Concomitant]
     Indication: Malignant middle cerebral artery syndrome
     Dosage: 20 MG, QD, , SINGLE DOSE, QD
     Route: 048
     Dates: start: 20220828
  7. ELIQUIS [Concomitant]
     Active Substance: APIXABAN
     Dosage: 5 MG,SINGLE DOSE, BID
     Route: 048
     Dates: start: 20220828
  8. ROFLUMILAST [Concomitant]
     Active Substance: ROFLUMILAST
     Indication: Chronic obstructive pulmonary disease
     Dosage: 500 UG, QD
     Route: 048
     Dates: start: 20220810

REACTIONS (2)
  - Dysarthria [Recovered/Resolved]
  - Disorientation [Recovered/Resolved]

NARRATIVE: CASE EVENT DATE: 20220828
